FAERS Safety Report 7806106-9 (Version None)
Quarter: 2011Q4

REPORT INFORMATION
  Report Type: 
  Country: None (occurrence: None)
  Receive Date: 20111011
  Receipt Date: 20110930
  Transmission Date: 20120403
  Serious: Yes (Other)
  Sender: FDA-Public Use
  Company Number: US-US-EMD SERONO, INC.-7086683

PATIENT
  Sex: Female

DRUGS (1)
  1. REBIF [Suspect]
     Indication: PRODUCT USED FOR UNKNOWN INDICATION
     Route: 058
     Dates: start: 20060426

REACTIONS (5)
  - INTERVERTEBRAL DISC PROTRUSION [None]
  - NASOPHARYNGITIS [None]
  - URINARY TRACT INFECTION [None]
  - PYREXIA [None]
  - MUSCULOSKELETAL STIFFNESS [None]
